FAERS Safety Report 9704602 (Version 1)
Quarter: 2013Q4

REPORT INFORMATION
  Report Type: Spontaneous
  Country: US (occurrence: US)
  Receive Date: 20131122
  Receipt Date: 20131122
  Transmission Date: 20140711
  Serious: Yes (Other)
  Sender: FDA-Public Use
  Company Number: US-ACTAVIS-2013-20967

PATIENT
  Age: 73 Year
  Sex: Female
  Weight: 91 kg

DRUGS (2)
  1. PREDNISONE (WATSON LABORATORIES) [Suspect]
     Indication: PULMONARY MASS
     Dosage: 10 MG, UNKNOWN
     Route: 065
     Dates: start: 20110826
  2. AZITHROMYCIN [Suspect]
     Indication: LUNG INFECTION
     Dosage: UNK, UNKNOWN
     Route: 065
     Dates: start: 201310, end: 201310

REACTIONS (4)
  - Muscle atrophy [Not Recovered/Not Resolved]
  - Cutis laxa [Not Recovered/Not Resolved]
  - Back pain [Not Recovered/Not Resolved]
  - Enuresis [Recovered/Resolved]
